FAERS Safety Report 10756047 (Version 1)
Quarter: 2015Q1

REPORT INFORMATION
  Report Type: Not Available
  Country: SE (occurrence: SE)
  Receive Date: 20150202
  Receipt Date: 20150202
  Transmission Date: 20150721
  Serious: Yes (Hospitalization)
  Sender: FDA-Public Use
  Company Number: SE-IAC JAPAN XML-GBR-2014-0017093

PATIENT
  Age: 87 Year
  Sex: Female

DRUGS (10)
  1. ALVEDON [Concomitant]
     Active Substance: ACETAMINOPHEN
  2. NORSPAN [Suspect]
     Active Substance: BUPRENORPHINE
     Indication: PRODUCT USED FOR UNKNOWN INDICATION
     Dosage: UNK
     Route: 062
     Dates: end: 201312
  3. SOBRIL [Concomitant]
     Active Substance: OXAZEPAM
  4. FOLACIN                            /00024201/ [Concomitant]
     Active Substance: FOLIC ACID
  5. CITALOPRAM [Concomitant]
     Active Substance: CITALOPRAM HYDROBROMIDE
  6. LAKTULOS [Concomitant]
     Route: 048
  7. KALCIPOS-D [Concomitant]
     Active Substance: CALCIUM CARBONATE\CHOLECALCIFEROL
  8. DONEPEZIL [Concomitant]
     Active Substance: DONEPEZIL
  9. BETOLVIDON [Concomitant]
  10. ALENDRONIC ACID [Concomitant]
     Active Substance: ALENDRONIC ACID

REACTIONS (2)
  - General physical health deterioration [Unknown]
  - Confusional state [Unknown]

NARRATIVE: CASE EVENT DATE: 20131205
